FAERS Safety Report 7558989-8 (Version None)
Quarter: 2011Q2

REPORT INFORMATION
  Report Type: 
  Country: None (occurrence: None)
  Receive Date: 20110621
  Receipt Date: 20110616
  Transmission Date: 20111010
  Serious: No
  Sender: FDA-Public Use
  Company Number: US-PFIZER INC-2011133697

PATIENT
  Sex: Male
  Weight: 90.703 kg

DRUGS (1)
  1. VIAGRA [Suspect]
     Dosage: 100 MG, UNK
     Route: 048
     Dates: start: 20110501, end: 20110510

REACTIONS (2)
  - PENILE PAIN [None]
  - PENIS DISORDER [None]
